FAERS Safety Report 4822948-6 (Version None)
Quarter: 2005Q4

REPORT INFORMATION
  Report Type: 
  Country: None (occurrence: None)
  Receive Date: 20051104
  Receipt Date: 20051027
  Transmission Date: 20060501
  Serious: Yes (Other)
  Sender: FDA-Public Use
  Company Number: P05-002

PATIENT
  Sex: Male

DRUGS (1)
  1. PROSTASCINT [Suspect]
     Indication: PROSTATE CANCER
     Dosage: 5.8 ML IV
     Route: 042

REACTIONS (4)
  - BLOOD PRESSURE INCREASED [None]
  - COLD SWEAT [None]
  - LOSS OF CONSCIOUSNESS [None]
  - RASH [None]
